FAERS Safety Report 7918884-9 (Version None)
Quarter: 2011Q4

REPORT INFORMATION
  Report Type: 
  Country: None (occurrence: None)
  Receive Date: 20111116
  Receipt Date: 20111110
  Transmission Date: 20120403
  Serious: Yes (Other)
  Sender: FDA-Public Use
  Company Number: PHHY2011US37109

PATIENT
  Sex: Female

DRUGS (1)
  1. GILENYA [Suspect]
     Indication: MULTIPLE SCLEROSIS
     Dosage: 0.5 MG, QD
     Route: 048
     Dates: start: 20110325, end: 20111101

REACTIONS (6)
  - FEELING HOT [None]
  - ALOPECIA [None]
  - SYNCOPE [None]
  - DIARRHOEA [None]
  - BLOOD URINE PRESENT [None]
  - VITAMIN D DECREASED [None]
